FAERS Safety Report 6814888-8 (Version None)
Quarter: 2010Q3

REPORT INFORMATION
  Report Type: 
  Country: None (occurrence: None)
  Receive Date: 20100702
  Receipt Date: 20100622
  Transmission Date: 20110219
  Serious: Yes (Hospitalization)
  Sender: FDA-Public Use
  Company Number: BE-ROCHE-703908

PATIENT
  Sex: Female
  Weight: 82 kg

DRUGS (2)
  1. HERCEPTIN [Suspect]
     Indication: BREAST CANCER
     Dosage: LAST DOSE PRIOR TO SAE: 04 MAY 2010, DOSE: 164 MG, PERMANENTLY STOPPED.
     Route: 042
     Dates: start: 20100303, end: 20100510
  2. PACLITAXEL [Suspect]
     Indication: BREAST CANCER
     Route: 042
     Dates: start: 20100302

REACTIONS (1)
  - ORGANISING PNEUMONIA [None]
